FAERS Safety Report 5148080-2 (Version None)
Quarter: 2006Q4

REPORT INFORMATION
  Report Type: 
  Country: None (occurrence: None)
  Receive Date: 20061106
  Receipt Date: 20061024
  Transmission Date: 20070319
  Serious: Yes (Other)
  Sender: FDA-Public Use
  Company Number: 2006107386

PATIENT
  Age: 57 Year
  Sex: Female

DRUGS (4)
  1. MIGLITOL TABLET (MIGLITOL) [Suspect]
     Indication: DIABETES MELLITUS
     Dosage: 150 MG, ORAL
     Route: 048
     Dates: start: 20060808, end: 20060818
  2. VOGLIBOSE (VOGLIBOSE) [Suspect]
     Indication: DIABETES MELLITUS
     Dosage: 0.4 MG (0.2 MG, 2 IN 1 D), ORAL
     Route: 048
     Dates: start: 20060803, end: 20060808
  3. MICARDIS [Concomitant]
  4. CALBLOCK (AZELNIDIPINE) [Concomitant]

REACTIONS (9)
  - ALANINE AMINOTRANSFERASE INCREASED [None]
  - ASPARTATE AMINOTRANSFERASE INCREASED [None]
  - BLOOD ALKALINE PHOSPHATASE INCREASED [None]
  - BLOOD GLUCOSE INCREASED [None]
  - BLOOD LACTATE DEHYDROGENASE INCREASED [None]
  - CONDITION AGGRAVATED [None]
  - GAMMA-GLUTAMYLTRANSFERASE INCREASED [None]
  - HEPATIC FUNCTION ABNORMAL [None]
  - LIVER DISORDER [None]
